FAERS Safety Report 8978314 (Version 1)
Quarter: 2012Q4

REPORT INFORMATION
  Report Type: Report from Study
  Country: CA (occurrence: CA)
  Receive Date: 20121221
  Receipt Date: 20121221
  Transmission Date: 20130627
  Serious: Yes (Other)
  Sender: FDA-Public Use
  Company Number: CA-JNJFOC-20121205579

PATIENT
  Age: 38 Year
  Sex: Female

DRUGS (3)
  1. REMICADE [Suspect]
     Indication: CROHN^S DISEASE
     Dosage: 59 infusions
     Route: 042
  2. TECTA [Concomitant]
     Route: 065
  3. IMODIUM [Concomitant]
     Route: 065

REACTIONS (9)
  - Weight decreased [Unknown]
  - Drug ineffective [Not Recovered/Not Resolved]
  - Oropharyngeal pain [Not Recovered/Not Resolved]
  - Cough [Recovering/Resolving]
  - Pyrexia [Recovered/Resolved]
  - Decreased appetite [Recovering/Resolving]
  - Lid sulcus deepened [Not Recovered/Not Resolved]
  - Pallor [Not Recovered/Not Resolved]
  - Chills [Recovering/Resolving]
